FAERS Safety Report 4723565-9 (Version None)
Quarter: 2005Q3

REPORT INFORMATION
  Report Type: 
  Country: None (occurrence: None)
  Receive Date: 20050720
  Receipt Date: 20050720
  Transmission Date: 20060218
  Serious: Yes (Hospitalization)
  Sender: FDA-Public Use
  Company Number: None

PATIENT
  Age: 67 Year
  Sex: Male

DRUGS (1)
  1. AQUAMEPHYTON [Suspect]
     Indication: FEMORAL NECK FRACTURE
     Dosage: 1 MG

REACTIONS (1)
  - CARDIO-RESPIRATORY ARREST [None]
